FAERS Safety Report 7721137-5 (Version None)
Quarter: 2011Q3

REPORT INFORMATION
  Report Type: 
  Country: None (occurrence: None)
  Receive Date: 20110830
  Receipt Date: 20110830
  Transmission Date: 20111222
  Serious: Yes (Other)
  Sender: FDA-Public Use
  Company Number: None

PATIENT
  Sex: Male
  Weight: 77.3 kg

DRUGS (9)
  1. ASPIRIN [Concomitant]
  2. PRADAXA [Suspect]
     Indication: ATRIAL FIBRILLATION
     Dosage: 150 MG BID ORAL
     Route: 048
     Dates: start: 20110809, end: 20110810
  3. PANTOPRAZOLE [Concomitant]
  4. TRAMADOL HCL [Concomitant]
  5. LOVAZA [Concomitant]
  6. NIACIN [Concomitant]
  7. AMIODARONE HCL [Concomitant]
  8. ATORVASTATIN [Concomitant]
  9. VITAMIN D [Concomitant]

REACTIONS (6)
  - BURNING SENSATION [None]
  - NAUSEA [None]
  - DYSPNOEA [None]
  - VOMITING [None]
  - SWELLING FACE [None]
  - LUNG DISORDER [None]
